FAERS Safety Report 17561235 (Version 1)
Quarter: 2020Q1

REPORT INFORMATION
  Report Type: Spontaneous
  Country: US (occurrence: US)
  Receive Date: 20200312
  Receipt Date: 20200312
  Transmission Date: 20200409
  Serious: Yes (Hospitalization)
  Sender: FDA-Public Use
  Company Number: None

PATIENT
  Age: 60 Year
  Sex: Female

DRUGS (11)
  1. MULTIVITAMIN ADLT 50+ [Concomitant]
  2. CALCIUM FOR WOMEN [Concomitant]
  3. ATORVASTATIN [Concomitant]
     Active Substance: ATORVASTATIN
  4. CIMETIDINE [Concomitant]
     Active Substance: CIMETIDINE
  5. CEPHALEXIN. [Concomitant]
     Active Substance: CEPHALEXIN
  6. ENALAPRIL [Concomitant]
     Active Substance: ENALAPRIL
  7. OXYCODONE AND ACETAMINOPHEN [Concomitant]
     Active Substance: ACETAMINOPHEN\OXYCODONE HYDROCHLORIDE
  8. NAPROXEN. [Concomitant]
     Active Substance: NAPROXEN
  9. ENBREL [Suspect]
     Active Substance: ETANERCEPT
     Indication: RHEUMATOID ARTHRITIS
     Route: 058
     Dates: start: 20190215
  10. PREDNISONE. [Concomitant]
     Active Substance: PREDNISONE
  11. ENERGY POW BOOSTER [Concomitant]

REACTIONS (4)
  - Wound [None]
  - Fall [None]
  - Upper limb fracture [None]
  - Multiple injuries [None]

NARRATIVE: CASE EVENT DATE: 20200304
